FAERS Safety Report 17331858 (Version 1)
Quarter: 2020Q1

REPORT INFORMATION
  Report Type: Spontaneous
  Country: BR (occurrence: BR)
  Receive Date: 20200128
  Receipt Date: 20200128
  Transmission Date: 20200409
  Serious: Yes (Hospitalization)
  Sender: FDA-Public Use
  Company Number: BR-B.I. PHARMACEUTICALS,INC./RIDGEFIELD-2020-BI-003617

PATIENT
  Age: 55 Year
  Sex: Male
  Weight: 72 kg

DRUGS (6)
  1. BRILINTA [Concomitant]
     Active Substance: TICAGRELOR
     Indication: ANTICOAGULANT THERAPY
     Route: 048
     Dates: start: 201904
  2. SOMALGIN CARDIO [Concomitant]
     Active Substance: ASPIRIN\DIHYDROXYALUMINUM AMINOACETATE ANHYDROUS\MAGNESIUM CARBONATE
     Indication: ANTICOAGULANT THERAPY
     Route: 048
     Dates: start: 2018
  3. SELOZOK [Concomitant]
     Active Substance: METOPROLOL SUCCINATE
     Indication: HYPERTENSION
     Route: 048
     Dates: start: 2016
  4. DIOVAN [Concomitant]
     Active Substance: VALSARTAN
     Indication: DRUG THERAPY
     Route: 048
     Dates: start: 2018
  5. JARDIANCE [Suspect]
     Active Substance: EMPAGLIFLOZIN
     Indication: TYPE 2 DIABETES MELLITUS
     Route: 048
     Dates: start: 2018, end: 20200109
  6. ZETIA [Concomitant]
     Active Substance: EZETIMIBE
     Indication: CARDIAC DISORDER
     Route: 048
     Dates: start: 2018

REACTIONS (3)
  - Pancreatitis [Not Recovered/Not Resolved]
  - Coronary artery disease [Recovered/Resolved]
  - Duodenitis [Not Recovered/Not Resolved]

NARRATIVE: CASE EVENT DATE: 201904
